FAERS Safety Report 8270894 (Version 5)
Quarter: 2018Q3

REPORT INFORMATION
  Report Type: Report from Study
  Country: JP (occurrence: JP)
  Receive Date: 20111201
  Receipt Date: 20180830
  Transmission Date: 20181010
  Serious: Yes (Hospitalization, Other)
  Sender: FDA-Public Use
  Company Number: PHHY2009JP26266

PATIENT
  Age: 47 Year
  Sex: Female

DRUGS (7)
  1. TASIGNA [Suspect]
     Active Substance: NILOTINIB
     Dosage: 200 MG, QOD
     Route: 048
     Dates: start: 20090618, end: 20090629
  2. VALTREX [Concomitant]
     Active Substance: VALACYCLOVIR HYDROCHLORIDE
     Indication: PROPHYLAXIS
     Dosage: 500 MG, UNK
     Route: 048
     Dates: start: 20070725, end: 20091005
  3. TASIGNA [Suspect]
     Active Substance: NILOTINIB
     Dosage: 200 MG, QD
     Route: 048
     Dates: start: 20090630, end: 20100807
  4. FERROMIA [Concomitant]
     Active Substance: SODIUM FERROUS CITRATE
     Indication: PROPHYLAXIS
     Dosage: 50 MG, UNK
     Route: 048
     Dates: start: 20090603
  5. TACROLIMUS. [Suspect]
     Active Substance: TACROLIMUS
     Indication: ALLOGENIC BONE MARROW TRANSPLANTATION THERAPY
     Route: 065
  6. CYCLOPHOSPHAMIDE. [Suspect]
     Active Substance: CYCLOPHOSPHAMIDE
     Indication: ALLOGENIC BONE MARROW TRANSPLANTATION THERAPY
     Route: 065
  7. TASIGNA [Suspect]
     Active Substance: NILOTINIB
     Indication: CHRONIC MYELOID LEUKAEMIA
     Dosage: 200 MG, QD
     Route: 048
     Dates: start: 20090528, end: 20090529

REACTIONS (13)
  - Bone marrow failure [Unknown]
  - Reversible cerebral vasoconstriction syndrome [Recovering/Resolving]
  - White blood cell count decreased [Not Recovered/Not Resolved]
  - Haematocrit decreased [Recovering/Resolving]
  - Red blood cell count decreased [Not Recovered/Not Resolved]
  - Posterior reversible encephalopathy syndrome [Unknown]
  - Tension headache [Unknown]
  - Hypokalaemia [Recovered/Resolved]
  - Platelet count decreased [Not Recovered/Not Resolved]
  - Platelet count decreased [Recovered/Resolved]
  - Pancytopenia [Unknown]
  - Myelodysplastic syndrome [Recovering/Resolving]
  - Haemoglobin decreased [Recovering/Resolving]

NARRATIVE: CASE EVENT DATE: 20090529
